FAERS Safety Report 21868145 (Version 1)
Quarter: 2023Q1

REPORT INFORMATION
  Report Type: Spontaneous
  Country: US (occurrence: US)
  Receive Date: 20230116
  Receipt Date: 20230116
  Transmission Date: 20230417
  Serious: Yes (Hospitalization)
  Sender: FDA-Public Use
  Company Number: US-BRISTOL-MYERS SQUIBB COMPANY-2023-006236

PATIENT
  Age: 74 Year
  Sex: Female
  Weight: 82.1 kg

DRUGS (1)
  1. REVLIMID [Suspect]
     Active Substance: LENALIDOMIDE
     Indication: Plasma cell myeloma
     Dosage: 14D OF 28D CYCLE
     Route: 048
     Dates: end: 20230112

REACTIONS (4)
  - Hypertension [Unknown]
  - Dyspnoea [Unknown]
  - Blood potassium decreased [Unknown]
  - Off label use [Unknown]
